FAERS Safety Report 5670050-6 (Version None)
Quarter: 2008Q1

REPORT INFORMATION
  Report Type: 
  Country: None (occurrence: None)
  Receive Date: 20080312
  Receipt Date: 20080221
  Transmission Date: 20080703
  Serious: Yes (Death, Life-Threatening, Hospitalization)
  Sender: FDA-Public Use
  Company Number: DSA_31517_2008

PATIENT
  Sex: Male

DRUGS (3)
  1. MONO-TILDIEM (MONO-TILDIEM SLOW RELEASE - DILTIAZEM HYDROCHLORIDE) (NO [Suspect]
     Indication: HYPERTENSION
     Dosage: (300 MG QD ORAL)
     Route: 048
     Dates: end: 20080108
  2. BEFIZAL [Concomitant]
  3. DURAGESIC-100 [Concomitant]

REACTIONS (3)
  - LOSS OF CONSCIOUSNESS [None]
  - SINUS BRADYCARDIA [None]
  - SUDDEN DEATH [None]
